FAERS Safety Report 9201908 (Version 2)
Quarter: 2013Q4

REPORT INFORMATION
  Report Type: Spontaneous
  Country: US (occurrence: US)
  Receive Date: 20130401
  Receipt Date: 20131202
  Transmission Date: 20140711
  Serious: Yes (Other)
  Sender: FDA-Public Use
  Company Number: US-BAYER-2013-038365

PATIENT
  Sex: Female

DRUGS (9)
  1. YAZ [Suspect]
  2. YASMIN [Suspect]
  3. FELODIPINE [Concomitant]
  4. PRENATAL PLUS IRON [Concomitant]
  5. IBUPROFEN [Concomitant]
  6. FLONASE [Concomitant]
     Route: 045
  7. FEXOFENADINE [Concomitant]
  8. HYDROCET [Concomitant]
     Dosage: 5 MG, UNK
  9. HYDROCET [Concomitant]
     Dosage: 500 MG, UNK

REACTIONS (6)
  - Gallbladder injury [None]
  - Cholecystitis chronic [None]
  - Biliary dyskinesia [None]
  - Injury [None]
  - Pain [None]
  - Pain [None]
